APPROVED DRUG PRODUCT: NICOTROL
Active Ingredient: NICOTINE
Strength: 4MG/CARTRIDGE
Dosage Form/Route: INHALANT;ORAL
Application: N020714 | Product #001
Applicant: PFIZER INC
Approved: May 2, 1997 | RLD: Yes | RS: No | Type: DISCN